FAERS Safety Report 19238087 (Version 1)
Quarter: 2021Q2

REPORT INFORMATION
  Report Type: Spontaneous
  Country: IT (occurrence: IT)
  Receive Date: 20210510
  Receipt Date: 20210510
  Transmission Date: 20210717
  Serious: Yes (Other)
  Sender: FDA-Public Use
  Company Number: IT-TELIGENT, INC-20210400040

PATIENT

DRUGS (8)
  1. HYDROCORTISONE. [Suspect]
     Active Substance: HYDROCORTISONE
     Indication: ADRENAL INSUFFICIENCY
     Dosage: 100 MILLIGRAM
     Route: 040
     Dates: start: 202004
  2. LOW MOLECULAR WEIGHT HEPARIN [Suspect]
     Active Substance: UNSPECIFIED INGREDIENT
     Dosage: FULL DOSE
  3. HYDROCORTISONE. [Suspect]
     Active Substance: HYDROCORTISONE
     Dosage: 200 MILLIGRAM, (CONTINUOUS INFUSION OF 200 MG/24 H)
     Route: 042
     Dates: start: 202004
  4. CORTISONE ACETATE. [Suspect]
     Active Substance: CORTISONE ACETATE
     Dosage: (25 + 12.5 + 12.5 MG/DAY)
     Route: 048
     Dates: start: 202004
  5. HYDROCORTISONE. [Suspect]
     Active Substance: HYDROCORTISONE
     Dosage: 50 MILLIGRAM (50 MG EVERY 6 H IV)
     Route: 042
     Dates: start: 202004
  6. HYDROCORTISONE. [Suspect]
     Active Substance: HYDROCORTISONE
     Dosage: PROGRESSIVELY REDUCED
     Dates: start: 202004
  7. CORTISONE ACETATE. [Suspect]
     Active Substance: CORTISONE ACETATE
     Dosage: 75 MILLIGRAM, QD
  8. CORTISONE ACETATE. [Suspect]
     Active Substance: CORTISONE ACETATE
     Dosage: (12.5 +12.5 + 6.25 MG)
     Route: 048
     Dates: start: 202005

REACTIONS (4)
  - Pyrexia [Recovered/Resolved]
  - Pulmonary embolism [Recovered/Resolved]
  - Exposure during pregnancy [Unknown]
  - Respiratory disorder [Recovered/Resolved]

NARRATIVE: CASE EVENT DATE: 202004
